FAERS Safety Report 6012477-9 (Version None)
Quarter: 2008Q4

REPORT INFORMATION
  Report Type: 
  Country: None (occurrence: None)
  Receive Date: 20081218
  Receipt Date: 20081203
  Transmission Date: 20090506
  Serious: Yes (Hospitalization)
  Sender: FDA-Public Use
  Company Number: US-GENENTECH-273544

PATIENT
  Sex: Male

DRUGS (4)
  1. BEVACIZUMAB [Suspect]
     Indication: NASOPHARYNGEAL CANCER
     Dosage: 15 MG/KG, UNK
     Route: 042
     Dates: start: 20080112
  2. CISPLATIN [Suspect]
     Indication: NASOPHARYNGEAL CANCER
     Dosage: 100 MG/M2, UNK
     Route: 042
     Dates: start: 20080112
  3. RADIATION THERAPY [Concomitant]
     Indication: NASOPHARYNGEAL CANCER
     Dosage: 70 GY, UNK
  4. SODIUM CHLORIDE [Concomitant]
     Indication: HYPONATRAEMIA

REACTIONS (3)
  - HYPERTENSION [None]
  - HYPONATRAEMIA [None]
  - SUPRAVENTRICULAR TACHYCARDIA [None]
